FAERS Safety Report 11883989 (Version 1)
Quarter: 2016Q1

REPORT INFORMATION
  Report Type: Spontaneous
  Country: TW (occurrence: TW)
  Receive Date: 20160102
  Receipt Date: 20160102
  Transmission Date: 20160526
  Serious: Yes (Hospitalization, Other)
  Sender: FDA-Public Use
  Company Number: TW-ACCORD-036704

PATIENT
  Age: 45 Year
  Sex: Male

DRUGS (1)
  1. METHOTREXATE [Suspect]
     Active Substance: METHOTREXATE
     Indication: PSORIASIS
     Route: 048

REACTIONS (6)
  - Kaposi^s varicelliform eruption [Recovering/Resolving]
  - Psoriasis [Recovering/Resolving]
  - Sepsis [Unknown]
  - Acarodermatitis [Unknown]
  - Treatment noncompliance [Unknown]
  - Staphylococcal infection [Unknown]
